FAERS Safety Report 8131094-8 (Version None)
Quarter: 2012Q1

REPORT INFORMATION
  Report Type: 
  Country: None (occurrence: None)
  Receive Date: 20120209
  Receipt Date: 20120209
  Transmission Date: 20120608
  Serious: No
  Sender: FDA-Public Use
  Company Number: None

PATIENT
  Sex: Female
  Weight: 78.9259 kg

DRUGS (2)
  1. PEDIARIX LOT OC 21830000 EXP 4/6/13 [Suspect]
     Indication: IMMUNISATION
     Dosage: IM LT
     Dates: start: 20120120
  2. PENTACEL [Suspect]
     Dosage: IM RT
     Route: 030
     Dates: start: 20120122

REACTIONS (1)
  - WRONG DRUG ADMINISTERED [None]
